FAERS Safety Report 15326800 (Version 1)
Quarter: 2018Q3

REPORT INFORMATION
  Report Type: Spontaneous
  Country: US (occurrence: US)
  Receive Date: 20180828
  Receipt Date: 20180828
  Transmission Date: 20181010
  Serious: Yes (Death, Other)
  Sender: FDA-Public Use
  Company Number: US-GLAXOSMITHKLINE-US2018154150

PATIENT
  Age: 47 Year
  Sex: Male

DRUGS (1)
  1. BREO ELLIPTA [Suspect]
     Active Substance: FLUTICASONE FUROATE\VILANTEROL TRIFENATATE
     Indication: CHRONIC OBSTRUCTIVE PULMONARY DISEASE
     Route: 055

REACTIONS (6)
  - Cardiac failure [Fatal]
  - Drug dose omission [Unknown]
  - Dyspnoea [Unknown]
  - Hypoxia [Unknown]
  - Asthma [Fatal]
  - Brain injury [Fatal]

NARRATIVE: CASE EVENT DATE: 2018
